FAERS Safety Report 7429812-7 (Version None)
Quarter: 2011Q2

REPORT INFORMATION
  Report Type: 
  Country: None (occurrence: None)
  Receive Date: 20110421
  Receipt Date: 20110412
  Transmission Date: 20111010
  Serious: Yes (Life-Threatening, Hospitalization, Other)
  Sender: FDA-Public Use
  Company Number: US-JNJFOC-20110405769

PATIENT
  Age: 11 Year
  Sex: Female

DRUGS (8)
  1. OMEPRAZOLE [Concomitant]
     Route: 065
  2. CITALOPRAM HYDROCHLORIDE [Suspect]
     Indication: PRODUCT USED FOR UNKNOWN INDICATION
     Route: 065
  3. IBUPROFEN [Concomitant]
     Route: 065
  4. ARIPIPRAZOLE [Suspect]
     Indication: PRODUCT USED FOR UNKNOWN INDICATION
     Route: 065
  5. ESCITALOPRAM OXALATE [Suspect]
     Indication: PRODUCT USED FOR UNKNOWN INDICATION
     Route: 065
  6. MONTELUKAST SODIUM [Concomitant]
     Route: 065
  7. ACETAMINOPHEN [Concomitant]
  8. TRAMADOL HCL [Suspect]
     Indication: PRODUCT USED FOR UNKNOWN INDICATION
     Route: 065

REACTIONS (5)
  - CEREBRAL VENOUS THROMBOSIS [None]
  - SUICIDE ATTEMPT [None]
  - CARDIAC ARREST [None]
  - ACCIDENTAL DRUG INTAKE BY CHILD [None]
  - MULTIPLE DRUG OVERDOSE [None]
